FAERS Safety Report 20095975 (Version 1)
Quarter: 2021Q4

REPORT INFORMATION
  Report Type: Spontaneous
  Country: US (occurrence: US)
  Receive Date: 20211122
  Receipt Date: 20211122
  Transmission Date: 20220303
  Serious: No
  Sender: FDA-Public Use
  Company Number: US-ONCOPEPPR-00837

PATIENT
  Sex: Female

DRUGS (1)
  1. PEPAXTO [Suspect]
     Active Substance: MELPHALAN FLUFENAMIDE
     Indication: Plasma cell myeloma
     Dosage: TIME INTERVAL: CYCLICAL
     Dates: start: 202106, end: 20210701

REACTIONS (2)
  - Nausea [Unknown]
  - Fatigue [Unknown]
